FAERS Safety Report 8786343 (Version 1)
Quarter: 2012Q4

REPORT INFORMATION
  Report Type: 
  Country: CN (occurrence: CN)
  Receive Date: 20120914
  Receipt Date: 20120914
  Transmission Date: 20130627
  Serious: No
  Sender: FDA-Public Use
  Company Number: CN-PFIZER INC-2012224530

PATIENT
  Age: 49 Year
  Sex: Male
  Weight: 62 kg

DRUGS (1)
  1. TAZOCIN [Suspect]
     Indication: ANTI-INFECTIVE THERAPY
     Dosage: 4.5 g, four times daily
     Route: 041
     Dates: start: 20110827

REACTIONS (7)
  - Temperature intolerance [Recovered/Resolved]
  - Pyrexia [Recovered/Resolved]
  - Tachypnoea [Recovered/Resolved]
  - Oxygen saturation decreased [Recovered/Resolved]
  - Flushing [Recovered/Resolved]
  - Rhonchi [Recovered/Resolved]
  - Rales [Recovered/Resolved]
